FAERS Safety Report 16478497 (Version 1)
Quarter: 2019Q2

REPORT INFORMATION
  Report Type: Spontaneous
  Country: US (occurrence: US)
  Receive Date: 20190626
  Receipt Date: 20190626
  Transmission Date: 20190711
  Serious: No
  Sender: FDA-Public Use
  Company Number: US-PFIZER INC-2019271858

PATIENT
  Age: 42 Year
  Sex: Female

DRUGS (1)
  1. BOSULIF [Suspect]
     Active Substance: BOSUTINIB MONOHYDRATE
     Indication: CHRONIC MYELOID LEUKAEMIA
     Dosage: 500 MG, CYCLIC (1 EACH DAY FOR TWO CONSECUTIVE DAYS, THEN ONE DAY OFF)
     Dates: start: 20190508

REACTIONS (6)
  - Product use issue [Unknown]
  - Vomiting [Unknown]
  - Off label use [Unknown]
  - Headache [Unknown]
  - Nausea [Unknown]
  - Bone pain [Unknown]

NARRATIVE: CASE EVENT DATE: 20190508
